FAERS Safety Report 17995495 (Version 3)
Quarter: 2020Q3

REPORT INFORMATION
  Report Type: Spontaneous
  Country: US (occurrence: US)
  Receive Date: 20200708
  Receipt Date: 20200915
  Transmission Date: 20201103
  Serious: No
  Sender: FDA-Public Use
  Company Number: US-BIOGEN-2020BI00895215

PATIENT
  Sex: Female

DRUGS (1)
  1. TYSABRI [Suspect]
     Active Substance: NATALIZUMAB
     Indication: MULTIPLE SCLEROSIS
     Route: 065
     Dates: start: 20150928

REACTIONS (5)
  - Eating disorder [Unknown]
  - Nausea [Unknown]
  - Multiple sclerosis [Unknown]
  - Abdominal pain upper [Unknown]
  - Diarrhoea [Unknown]
